FAERS Safety Report 14585047 (Version 2)
Quarter: 2018Q3

REPORT INFORMATION
  Report Type: Spontaneous
  Country: US (occurrence: US)
  Receive Date: 20180301
  Receipt Date: 20180927
  Transmission Date: 20181010
  Serious: No
  Sender: FDA-Public Use
  Company Number: US-BRISTOL-MYERS SQUIBB COMPANY-BMS-2018-019453

PATIENT
  Sex: Male
  Weight: 97 kg

DRUGS (1)
  1. YERVOY [Suspect]
     Active Substance: IPILIMUMAB
     Indication: MALIGNANT MELANOMA
     Dosage: 976 MG,FREQUENCY:EVERY 3 MONTHS
     Route: 042
     Dates: start: 20170629

REACTIONS (2)
  - Pruritus [Unknown]
  - Off label use [Unknown]
